FAERS Safety Report 7636419-5 (Version None)
Quarter: 2011Q3

REPORT INFORMATION
  Report Type: 
  Country: None (occurrence: None)
  Receive Date: 20110726
  Receipt Date: 20110711
  Transmission Date: 20111222
  Serious: Yes (Other)
  Sender: FDA-Public Use
  Company Number: TR-WATSON-2011-08408

PATIENT
  Age: 43 Year
  Sex: Male

DRUGS (3)
  1. HYDROXYZINE PAMOATE [Suspect]
     Indication: RASH
     Dosage: UNK
  2. LEVOCETIRIZINE DIHYDROCHLORIDE [Suspect]
     Indication: SKIN TEST
     Route: 061
  3. CETIRIZINE HCL [Suspect]
     Indication: RHINITIS ALLERGIC
     Dosage: UNK
     Route: 048

REACTIONS (3)
  - CONDITION AGGRAVATED [None]
  - SKIN REACTION [None]
  - DRUG ERUPTION [None]
